FAERS Safety Report 9495576 (Version 1)
Quarter: 2013Q3

REPORT INFORMATION
  Report Type: Spontaneous
  Country: FR (occurrence: FR)
  Receive Date: 20130903
  Receipt Date: 20130903
  Transmission Date: 20140515
  Serious: Yes (Hospitalization)
  Sender: FDA-Public Use
  Company Number: FR-SANOFI-AVENTIS-2013SA086031

PATIENT
  Age: 90 Year
  Sex: Male

DRUGS (12)
  1. IKOREL [Suspect]
     Indication: PRODUCT USED FOR UNKNOWN INDICATION
     Route: 048
     Dates: end: 20130621
  2. LASILIX [Suspect]
     Indication: OEDEMA PERIPHERAL
     Route: 048
     Dates: start: 201306, end: 20130619
  3. DEROXAT [Suspect]
     Indication: PRODUCT USED FOR UNKNOWN INDICATION
     Route: 048
     Dates: end: 20130619
  4. MODOPAR [Suspect]
     Indication: PRODUCT USED FOR UNKNOWN INDICATION
     Route: 048
     Dates: end: 20130621
  5. XATRAL [Concomitant]
     Indication: PROSTATIC ADENOMA
     Dosage: STRENGTH: 10 MG
     Route: 048
  6. PROCORALAN [Concomitant]
     Dosage: STRENGTH: 7.5 MG
     Route: 048
  7. INEXIUM [Concomitant]
     Dosage: STRENGTH: 40 MG
     Route: 048
  8. CRESTOR [Concomitant]
     Indication: CARDIOVASCULAR EVENT PROPHYLAXIS
     Dosage: STRENGTH: 5 MG
     Route: 048
  9. CHIBRO-PROSCAR [Concomitant]
     Indication: PROSTATIC ADENOMA
     Dosage: STRENGTH: 5 MG
     Route: 048
  10. PLAVIX [Concomitant]
     Indication: CARDIOVASCULAR EVENT PROPHYLAXIS
     Dosage: STRENGTH: 75 MG
     Route: 048
  11. DISCOTRINE [Concomitant]
     Dosage: FORM: PATCH?STRENGTH: 10 MG/20 HOURS
     Route: 062
  12. FUCIDINE [Concomitant]
     Dosage: ROUTE: DERMAL?STRENGTH: 2%
     Dates: start: 201306, end: 201306

REACTIONS (3)
  - General physical health deterioration [Recovered/Resolved]
  - Blood creatine increased [Recovered/Resolved]
  - Renal failure [Recovered/Resolved]
